FAERS Safety Report 25306144 (Version 4)
Quarter: 2025Q2

REPORT INFORMATION
  Report Type: Spontaneous
  Country: AR (occurrence: AR)
  Receive Date: 20250513
  Receipt Date: 20250613
  Transmission Date: 20250716
  Serious: Yes (Death, Hospitalization)
  Sender: GENMAB
  Company Number: AR-ABBVIE-6271672

PATIENT
  Age: 50 Year
  Sex: Female

DRUGS (1)
  1. EPCORITAMAB [Suspect]
     Active Substance: EPCORITAMAB
     Indication: Diffuse large B-cell lymphoma
     Route: 058

REACTIONS (6)
  - Death [Fatal]
  - Blood lactate dehydrogenase increased [Not Recovered/Not Resolved]
  - Neutrophil count abnormal [Unknown]
  - Platelet count abnormal [Unknown]
  - Disease progression [Unknown]
  - Cytopenia [Unknown]

NARRATIVE: CASE EVENT DATE: 20250522
